FAERS Safety Report 16647713 (Version 1)
Quarter: 2019Q3

REPORT INFORMATION
  Report Type: Spontaneous
  Country: DK (occurrence: DK)
  Receive Date: 20190730
  Receipt Date: 20190730
  Transmission Date: 20191004
  Serious: Yes (Life-Threatening)
  Sender: FDA-Public Use
  Company Number: DK-ABBVIE-19K-044-2871411-00

PATIENT
  Age: 73 Year
  Sex: Female

DRUGS (4)
  1. AZATHIOPRIN ACTAVIS [Suspect]
     Active Substance: AZATHIOPRINE
     Indication: CROHN^S DISEASE
     Dosage: DOSIS: VEKSLENDE (SIDSTE DOSIS VAR 25 MG 1 GANG DAGLIG)
     Route: 048
     Dates: start: 20160514, end: 2016
  2. METHOTREXATE. [Suspect]
     Active Substance: METHOTREXATE
     Indication: CROHN^S DISEASE
     Dosage: DOSAGE: ALTERNATE (LAST DOSE WAS 15MG ONCE WEEKLY). STRENGTH: 2.5 MG
     Route: 048
     Dates: start: 20160419, end: 2016
  3. HUMIRA [Suspect]
     Active Substance: ADALIMUMAB
     Indication: CROHN^S DISEASE
     Route: 058
     Dates: start: 20171120, end: 2018
  4. IMUREL [Suspect]
     Active Substance: AZATHIOPRINE SODIUM
     Indication: CROHN^S DISEASE
     Dosage: DOSAGE: ALTERNATE (LAST DOSE WAS 25 MG ONCE DAILY)
     Route: 048
     Dates: start: 20160514, end: 2016

REACTIONS (3)
  - Epstein-Barr virus infection [Unknown]
  - Follicular dendritic cell sarcoma [Unknown]
  - Malignant splenic neoplasm [Unknown]
